FAERS Safety Report 19938583 (Version 2)
Quarter: 2021Q4

REPORT INFORMATION
  Report Type: Spontaneous
  Country: IN (occurrence: IN)
  Receive Date: 20211011
  Receipt Date: 20211123
  Transmission Date: 20220303
  Serious: Yes (Other)
  Sender: FDA-Public Use
  Company Number: IN-BIOVITRUM-2021IN8978

PATIENT
  Age: 1 Year

DRUGS (1)
  1. NITISINONE [Suspect]
     Active Substance: NITISINONE
     Indication: Tyrosinaemia
     Route: 065

REACTIONS (3)
  - Liver transplant [Unknown]
  - Hepatic cirrhosis [Unknown]
  - Treatment noncompliance [Unknown]
